FAERS Safety Report 26125544 (Version 1)
Quarter: 2025Q4

REPORT INFORMATION
  Report Type: Spontaneous
  Country: GB (occurrence: GB)
  Receive Date: 20251205
  Receipt Date: 20251205
  Transmission Date: 20260117
  Serious: Yes (Other)
  Sender: MYLAN
  Company Number: None

PATIENT
  Age: 36 Year
  Sex: Female
  Weight: 75 kg

DRUGS (28)
  1. DOXYCYCLINE [Suspect]
     Active Substance: DOXYCYCLINE
     Indication: Product used for unknown indication
     Dosage: UNK (TWO NOW THEN ONE DAILY)
  2. DOXYCYCLINE [Suspect]
     Active Substance: DOXYCYCLINE
     Dosage: UNK (TWO NOW THEN ONE DAILY)
     Route: 065
  3. DOXYCYCLINE [Suspect]
     Active Substance: DOXYCYCLINE
     Dosage: UNK (TWO NOW THEN ONE DAILY)
     Route: 065
  4. DOXYCYCLINE [Suspect]
     Active Substance: DOXYCYCLINE
     Dosage: UNK (TWO NOW THEN ONE DAILY)
  5. NORETHINDRONE [Concomitant]
     Active Substance: NORETHINDRONE
     Indication: Ill-defined disorder
     Dosage: 1 DOSAGE FORM, TID (TAKE ONE TABLET THREE TIMES DAILY. START 3 DAYS...)
     Dates: start: 20250829, end: 20250918
  6. NORETHINDRONE [Concomitant]
     Active Substance: NORETHINDRONE
     Dosage: 1 DOSAGE FORM, TID (TAKE ONE TABLET THREE TIMES DAILY. START 3 DAYS...)
     Route: 065
     Dates: start: 20250829, end: 20250918
  7. NORETHINDRONE [Concomitant]
     Active Substance: NORETHINDRONE
     Dosage: 1 DOSAGE FORM, TID (TAKE ONE TABLET THREE TIMES DAILY. START 3 DAYS...)
     Route: 065
     Dates: start: 20250829, end: 20250918
  8. NORETHINDRONE [Concomitant]
     Active Substance: NORETHINDRONE
     Dosage: 1 DOSAGE FORM, TID (TAKE ONE TABLET THREE TIMES DAILY. START 3 DAYS...)
     Dates: start: 20250829, end: 20250918
  9. BECLOMETHASONE DIPROPIONATE [Concomitant]
     Active Substance: BECLOMETHASONE DIPROPIONATE
     Indication: Ill-defined disorder
     Dosage: UNK UNK, BID (INHALE TWO PUFFS TWICE DAILY)
     Dates: start: 20250527
  10. BECLOMETHASONE DIPROPIONATE [Concomitant]
     Active Substance: BECLOMETHASONE DIPROPIONATE
     Dosage: UNK UNK, BID (INHALE TWO PUFFS TWICE DAILY)
     Route: 055
     Dates: start: 20250527
  11. BECLOMETHASONE DIPROPIONATE [Concomitant]
     Active Substance: BECLOMETHASONE DIPROPIONATE
     Dosage: UNK UNK, BID (INHALE TWO PUFFS TWICE DAILY)
     Route: 055
     Dates: start: 20250527
  12. BECLOMETHASONE DIPROPIONATE [Concomitant]
     Active Substance: BECLOMETHASONE DIPROPIONATE
     Dosage: UNK UNK, BID (INHALE TWO PUFFS TWICE DAILY)
     Dates: start: 20250527
  13. FEXOFENADINE [Concomitant]
     Active Substance: FEXOFENADINE HYDROCHLORIDE
     Indication: Ill-defined disorder
     Dosage: 1 DOSAGE FORM, QD (TAKE ONE TABLET DAILY)
     Dates: start: 20250527
  14. FEXOFENADINE [Concomitant]
     Active Substance: FEXOFENADINE HYDROCHLORIDE
     Dosage: 1 DOSAGE FORM, QD (TAKE ONE TABLET DAILY)
     Route: 065
     Dates: start: 20250527
  15. FEXOFENADINE [Concomitant]
     Active Substance: FEXOFENADINE HYDROCHLORIDE
     Dosage: 1 DOSAGE FORM, QD (TAKE ONE TABLET DAILY)
     Route: 065
     Dates: start: 20250527
  16. FEXOFENADINE [Concomitant]
     Active Substance: FEXOFENADINE HYDROCHLORIDE
     Dosage: 1 DOSAGE FORM, QD (TAKE ONE TABLET DAILY)
     Dates: start: 20250527
  17. MONTELUKAST [Concomitant]
     Active Substance: MONTELUKAST
     Indication: Ill-defined disorder
     Dosage: 1 DOSAGE FORM, PM (TAKE ONE AT NIGHT)
     Dates: start: 20250527
  18. MONTELUKAST [Concomitant]
     Active Substance: MONTELUKAST
     Dosage: 1 DOSAGE FORM, PM (TAKE ONE AT NIGHT)
     Route: 065
     Dates: start: 20250527
  19. MONTELUKAST [Concomitant]
     Active Substance: MONTELUKAST
     Dosage: 1 DOSAGE FORM, PM (TAKE ONE AT NIGHT)
     Route: 065
     Dates: start: 20250527
  20. MONTELUKAST [Concomitant]
     Active Substance: MONTELUKAST
     Dosage: 1 DOSAGE FORM, PM (TAKE ONE AT NIGHT)
     Dates: start: 20250527
  21. SERTRALINE [Concomitant]
     Active Substance: SERTRALINE HYDROCHLORIDE
     Indication: Ill-defined disorder
     Dosage: 1 DOSAGE FORM, QD (TAKE ONE DAILY)
     Dates: start: 20250527
  22. SERTRALINE [Concomitant]
     Active Substance: SERTRALINE HYDROCHLORIDE
     Dosage: 1 DOSAGE FORM, QD (TAKE ONE DAILY)
     Route: 065
     Dates: start: 20250527
  23. SERTRALINE [Concomitant]
     Active Substance: SERTRALINE HYDROCHLORIDE
     Dosage: 1 DOSAGE FORM, QD (TAKE ONE DAILY)
     Route: 065
     Dates: start: 20250527
  24. SERTRALINE [Concomitant]
     Active Substance: SERTRALINE HYDROCHLORIDE
     Dosage: 1 DOSAGE FORM, QD (TAKE ONE DAILY)
     Dates: start: 20250527
  25. TERBUTALINE [Concomitant]
     Active Substance: TERBUTALINE
     Indication: Ill-defined disorder
     Dosage: 1 DOSAGE FORM, PRN (INHALE 1 DOSE AS NEEDED. THIS INHALER SHOULD LA..)
  26. TERBUTALINE [Concomitant]
     Active Substance: TERBUTALINE
     Dosage: 1 DOSAGE FORM, PRN (INHALE 1 DOSE AS NEEDED. THIS INHALER SHOULD LA..)
     Route: 055
  27. TERBUTALINE [Concomitant]
     Active Substance: TERBUTALINE
     Dosage: 1 DOSAGE FORM, PRN (INHALE 1 DOSE AS NEEDED. THIS INHALER SHOULD LA..)
     Route: 055
  28. TERBUTALINE [Concomitant]
     Active Substance: TERBUTALINE
     Dosage: 1 DOSAGE FORM, PRN (INHALE 1 DOSE AS NEEDED. THIS INHALER SHOULD LA..)

REACTIONS (2)
  - Eye swelling [Recovered/Resolved]
  - Eye pruritus [Recovered/Resolved]

NARRATIVE: CASE EVENT DATE: 20251110
